FAERS Safety Report 5996752-X (Version None)
Quarter: 2008Q4

REPORT INFORMATION
  Report Type: 
  Country: None (occurrence: None)
  Receive Date: 20081212
  Receipt Date: 20081023
  Transmission Date: 20090506
  Serious: No
  Sender: FDA-Public Use
  Company Number: US-ABBOTT-08P-163-0483649-00

PATIENT
  Sex: Male
  Weight: 56.75 kg

DRUGS (4)
  1. HUMIRA [Suspect]
     Indication: CROHN'S DISEASE
     Route: 058
  2. MESALAMINE [Concomitant]
     Indication: CROHN'S DISEASE
     Route: 048
  3. AZATHIOPRINE [Concomitant]
     Indication: CROHN'S DISEASE
     Route: 048
  4. LANSOPRAZOLE [Concomitant]
     Indication: GASTROOESOPHAGEAL REFLUX DISEASE
     Route: 048

REACTIONS (1)
  - INCORRECT DOSE ADMINISTERED [None]
